FAERS Safety Report 22113804 (Version 1)
Quarter: 2023Q1

REPORT INFORMATION
  Report Type: Spontaneous
  Country: BE (occurrence: None)
  Receive Date: 20230320
  Receipt Date: 20230320
  Transmission Date: 20230418
  Serious: Yes (Other)
  Sender: FDA-Public Use
  Company Number: BE-ROCHE-3311607

PATIENT
  Age: 58 Year
  Sex: Male

DRUGS (1)
  1. MABTHERA [Suspect]
     Active Substance: RITUXIMAB
     Indication: Tolosa-Hunt syndrome
     Route: 042
     Dates: start: 202209, end: 202212

REACTIONS (3)
  - Off label use [Unknown]
  - Cardiac arrest [Unknown]
  - Ventricular fibrillation [Unknown]

NARRATIVE: CASE EVENT DATE: 20220901
